FAERS Safety Report 18611740 (Version 1)
Quarter: 2020Q4

REPORT INFORMATION
  Report Type: Spontaneous
  Country: US (occurrence: US)
  Receive Date: 20201214
  Receipt Date: 20201214
  Transmission Date: 20210114
  Serious: No
  Sender: FDA-Public Use
  Company Number: None

PATIENT
  Age: 73 Year
  Sex: Female
  Weight: 81 kg

DRUGS (12)
  1. ERTAPENEM 1 GRAM [Suspect]
     Active Substance: ERTAPENEM
     Indication: MEDIASTINITIS
     Route: 042
     Dates: start: 20201030, end: 20201129
  2. ITRACONAZOLE. [Concomitant]
     Active Substance: ITRACONAZOLE
  3. ASPIRIN. [Concomitant]
     Active Substance: ASPIRIN
  4. CALCIUM [Concomitant]
     Active Substance: CALCIUM
  5. MULTIVITAMIN [Concomitant]
     Active Substance: VITAMINS
  6. CHOLESTYAMINE [Concomitant]
  7. LOSARTAN. [Concomitant]
     Active Substance: LOSARTAN
  8. NEXIUM [Concomitant]
     Active Substance: ESOMEPRAZOLE MAGNESIUM
  9. LOPERAMIDE [Concomitant]
     Active Substance: LOPERAMIDE
  10. PROBIOTIC [Concomitant]
     Active Substance: PROBIOTICS NOS
  11. MESALAMINE. [Concomitant]
     Active Substance: MESALAMINE
  12. HYDROCHLOROTHIAZIDE. [Concomitant]
     Active Substance: HYDROCHLOROTHIAZIDE

REACTIONS (5)
  - Joint swelling [None]
  - Rash macular [None]
  - Arthralgia [None]
  - Bone pain [None]
  - Tendon pain [None]

NARRATIVE: CASE EVENT DATE: 20201107
